FAERS Safety Report 16415247 (Version 2)
Quarter: 2019Q3

REPORT INFORMATION
  Report Type: Spontaneous
  Country: US (occurrence: US)
  Receive Date: 20190611
  Receipt Date: 20190708
  Transmission Date: 20191004
  Serious: Yes (Other)
  Sender: FDA-Public Use
  Company Number: US-PFIZER INC-2019242336

PATIENT
  Age: 54 Year
  Sex: Female
  Weight: 57.1 kg

DRUGS (1)
  1. VENLAFAXINE HCL [Suspect]
     Active Substance: VENLAFAXINE HYDROCHLORIDE
     Dosage: 150 MG, 1X/DAY
     Route: 048

REACTIONS (4)
  - Lip and/or oral cavity cancer [Unknown]
  - Oral disorder [Unknown]
  - Dry mouth [Unknown]
  - Fibromyalgia [Unknown]
